FAERS Safety Report 13700249 (Version 1)
Quarter: 2017Q2

REPORT INFORMATION
  Report Type: Spontaneous
  Country: US (occurrence: US)
  Receive Date: 20170629
  Receipt Date: 20170629
  Transmission Date: 20170830
  Serious: Yes (Hospitalization, Other)
  Sender: FDA-Public Use
  Company Number: US-SUN PHARMACEUTICAL INDUSTRIES LTD-2017US-144244

PATIENT
  Age: 61 Year
  Sex: Male

DRUGS (2)
  1. DULOXETINE. [Suspect]
     Active Substance: DULOXETINE
     Indication: PRODUCT USED FOR UNKNOWN INDICATION
     Dosage: UNK
     Route: 065
  2. PREGABALIN. [Suspect]
     Active Substance: PREGABALIN
     Indication: PRODUCT USED FOR UNKNOWN INDICATION
     Dosage: UNK
     Route: 065

REACTIONS (6)
  - Hallucinations, mixed [Recovering/Resolving]
  - Neuroleptic malignant syndrome [Recovering/Resolving]
  - Dysmetropsia [Recovering/Resolving]
  - Vomiting [Recovering/Resolving]
  - Drug withdrawal syndrome [Recovering/Resolving]
  - Cognitive disorder [Recovering/Resolving]
